FAERS Safety Report 7504364-1 (Version None)
Quarter: 2011Q2

REPORT INFORMATION
  Report Type: 
  Country: None (occurrence: None)
  Receive Date: 20110525
  Receipt Date: 20110516
  Transmission Date: 20111010
  Serious: Yes (Other)
  Sender: FDA-Public Use
  Company Number: CHPA2011JP07016

PATIENT

DRUGS (1)
  1. PUSENNID [Suspect]
     Dosage: UNK, UNK
     Route: 048

REACTIONS (1)
  - MELANOSIS COLI [None]
